FAERS Safety Report 20052092 (Version 2)
Quarter: 2021Q4

REPORT INFORMATION
  Report Type: Report from Study
  Country: US (occurrence: US)
  Receive Date: 20211110
  Receipt Date: 20211116
  Transmission Date: 20220303
  Serious: No
  Sender: FDA-Public Use
  Company Number: US-NOVARTISTESTPH-NVSC2021US256196

PATIENT
  Sex: Female

DRUGS (3)
  1. AFINITOR [Suspect]
     Active Substance: EVEROLIMUS
     Indication: Breast cancer female
     Dosage: 10 MG, QD
     Route: 048
     Dates: start: 202108
  2. AFINITOR [Suspect]
     Active Substance: EVEROLIMUS
     Indication: Neoplasm malignant
  3. AFINITOR [Suspect]
     Active Substance: EVEROLIMUS
     Indication: Metastases to liver

REACTIONS (3)
  - Product physical issue [Unknown]
  - Diarrhoea [Recovered/Resolved]
  - Pruritus [Recovering/Resolving]
